FAERS Safety Report 18213299 (Version 1)
Quarter: 2020Q3

REPORT INFORMATION
  Report Type: Spontaneous
  Country: US (occurrence: US)
  Receive Date: 20200829
  Receipt Date: 20200829
  Transmission Date: 20201103
  Serious: Yes (Hospitalization)
  Sender: FDA-Public Use
  Company Number: None

PATIENT
  Age: 22 Year
  Sex: Female
  Weight: 61.2 kg

DRUGS (7)
  1. ONCASPAR [Suspect]
     Active Substance: PEGASPARGASE
     Dates: end: 20200702
  2. DOXORUBICIN HYDROCHLORIDE. [Suspect]
     Active Substance: DOXORUBICIN HYDROCHLORIDE
     Dates: end: 20200713
  3. CYTARABINE. [Suspect]
     Active Substance: CYTARABINE
     Dates: end: 20200820
  4. METHOTREXATE. [Suspect]
     Active Substance: METHOTREXATE
     Dates: end: 20200810
  5. VINCRISTINE SULFATE. [Suspect]
     Active Substance: VINCRISTINE SULFATE
     Dates: end: 20200713
  6. THIOGUANINE (6?TG) [Suspect]
     Active Substance: THIOGUANINE ANHYDROUS
     Dates: end: 20200823
  7. CYCLOPHOSPHAMIDE. [Suspect]
     Active Substance: CYCLOPHOSPHAMIDE
     Dates: end: 20200810

REACTIONS (9)
  - Full blood count abnormal [None]
  - Visual field defect [None]
  - Tinnitus [None]
  - Photophobia [None]
  - Papilloedema [None]
  - Headache [None]
  - Musculoskeletal stiffness [None]
  - Pyrexia [None]
  - Infection [None]

NARRATIVE: CASE EVENT DATE: 20200824
